FAERS Safety Report 6788924-1 (Version None)
Quarter: 2010Q2

REPORT INFORMATION
  Report Type: 
  Country: None (occurrence: None)
  Receive Date: 20100623
  Receipt Date: 20080625
  Transmission Date: 20101027
  Serious: No
  Sender: FDA-Public Use
  Company Number: US-PFIZER INC-2008050479

PATIENT
  Sex: Male

DRUGS (4)
  1. GEODON [Suspect]
     Indication: SCHIZOPHRENIA
     Dates: start: 20040101, end: 20070101
  2. GEODON [Suspect]
     Indication: SCHIZOAFFECTIVE DISORDER
  3. ZYPREXA [Suspect]
  4. RISPERDAL [Suspect]

REACTIONS (3)
  - BLOOD PROLACTIN ABNORMAL [None]
  - DRUG INEFFECTIVE [None]
  - METABOLIC DISORDER [None]
